FAERS Safety Report 5256656-7 (Version None)
Quarter: 2007Q1

REPORT INFORMATION
  Report Type: 
  Country: None (occurrence: None)
  Receive Date: 20070306
  Receipt Date: 20070226
  Transmission Date: 20070707
  Serious: Yes (Hospitalization)
  Sender: FDA-Public Use
  Company Number: US-ELI_LILLY_AND_COMPANY-US200702005261

PATIENT
  Age: 67 Year
  Sex: Male

DRUGS (3)
  1. HUMULIN L [Suspect]
     Indication: DIABETES MELLITUS
  2. HUMULIN N [Suspect]
     Indication: DIABETES MELLITUS
  3. HUMULIN R [Suspect]
     Indication: DIABETES MELLITUS

REACTIONS (2)
  - BLOOD GLUCOSE DECREASED [None]
  - DEHYDRATION [None]
